FAERS Safety Report 15997076 (Version 1)
Quarter: 2019Q1

REPORT INFORMATION
  Report Type: Report from Study
  Country: US (occurrence: US)
  Receive Date: 20190222
  Receipt Date: 20190222
  Transmission Date: 20190418
  Serious: Yes (Hospitalization, Other)
  Sender: FDA-Public Use
  Company Number: US-SA-2019SA047351

PATIENT
  Age: 41 Year
  Sex: Male

DRUGS (2)
  1. INSULIN GLARGINE/LIXISENATIDE [Suspect]
     Active Substance: INSULIN GLARGINE\LIXISENATIDE
     Dosage: 40 U
     Dates: start: 20170201
  2. SOLOSTAR [Suspect]
     Active Substance: DEVICE
     Dosage: UNK
     Dates: start: 20170201

REACTIONS (7)
  - Wound [Recovering/Resolving]
  - Anxiety [Unknown]
  - Wound infection [Recovering/Resolving]
  - Nervousness [Unknown]
  - Decreased appetite [Unknown]
  - Hypoglycaemia [Unknown]
  - Nasopharyngitis [Recovering/Resolving]

NARRATIVE: CASE EVENT DATE: 20170201
